FAERS Safety Report 10047167 (Version 1)
Quarter: 2014Q1

REPORT INFORMATION
  Report Type: Spontaneous
  Country: US (occurrence: US)
  Receive Date: 20140331
  Receipt Date: 20140331
  Transmission Date: 20141002
  Serious: No
  Sender: FDA-Public Use
  Company Number: US-MYLANLABS-2013S1014909

PATIENT
  Age: 64 Year
  Sex: Female

DRUGS (2)
  1. FENTANYL TRANSDERMAL SYSTEM [Suspect]
     Indication: PAIN
     Dosage: CHANGE PATCH EVERY 3 DAYS.
     Route: 062
     Dates: start: 201305
  2. OXYCODONE / ACETAMINOPHEN [Concomitant]
     Dosage: TAKING 5 TABLETS DAILY.
     Route: 048

REACTIONS (3)
  - Pain [Not Recovered/Not Resolved]
  - Incorrect drug administration duration [Not Recovered/Not Resolved]
  - Wrong technique in drug usage process [Not Recovered/Not Resolved]
